FAERS Safety Report 4519727-6 (Version None)
Quarter: 2004Q4

REPORT INFORMATION
  Report Type: 
  Country: None (occurrence: None)
  Receive Date: 20041207
  Receipt Date: 20041125
  Transmission Date: 20050328
  Serious: Yes (Hospitalization)
  Sender: FDA-Public Use
  Company Number: JP-JNJFOC-20041106060

PATIENT
  Sex: Female
  Weight: 63 kg

DRUGS (14)
  1. REMICADE [Suspect]
     Route: 042
  2. REMICADE [Suspect]
     Route: 042
  3. REMICADE [Suspect]
     Indication: RHEUMATOID ARTHRITIS
     Route: 042
  4. RHEUMATREX [Suspect]
     Dosage: DOSE= 6 TABLETS A WEEK
     Route: 049
  5. RHEUMATREX [Suspect]
     Indication: RHEUMATOID ARTHRITIS
     Route: 049
  6. ADRENOCORTICAL HORMONE [Concomitant]
     Dosage: HAS BEEN OB FOR 13 YEARS
  7. PREDONINE [Concomitant]
     Route: 049
  8. PREDONINE [Concomitant]
     Route: 049
  9. BENET [Concomitant]
     Dosage: 1 DOSE= 1 TABLET
     Route: 049
  10. LANSOPRAZOLE [Concomitant]
     Dosage: 1 DOSE= 1 TABLET
     Route: 049
  11. OSTELUC [Concomitant]
     Dosage: 1 DOSE= 1 TABLET
     Route: 049
  12. ALOSSEN [Concomitant]
     Route: 049
  13. MUCOSTA [Concomitant]
     Route: 049
  14. MOVER [Concomitant]
     Route: 049

REACTIONS (4)
  - DYSPNOEA [None]
  - FUNGAL INFECTION [None]
  - INTERSTITIAL LUNG DISEASE [None]
  - RENAL IMPAIRMENT [None]
